FAERS Safety Report 5391836-1 (Version None)
Quarter: 2007Q3

REPORT INFORMATION
  Report Type: 
  Country: None (occurrence: None)
  Receive Date: 20070718
  Receipt Date: 20070709
  Transmission Date: 20080115
  Serious: Yes (Life-Threatening, Hospitalization)
  Sender: FDA-Public Use
  Company Number: 2007SP011611

PATIENT
  Age: 60 Year
  Sex: Male
  Weight: 104.3273 kg

DRUGS (19)
  1. INTRON A [Suspect]
     Indication: MALIGNANT MELANOMA
     Dosage: 45 MIU; QD; IV
     Route: 042
     Dates: start: 20070604, end: 20070606
  2. VYTORIN (EZETIMIBE/SIMVASTATIN) (CON.) [Concomitant]
  3. VITAMIN C (CON.) [Concomitant]
  4. AVAPRO (CON.) [Concomitant]
  5. HYDROCHLOROTHIAZIDE (CON.) [Concomitant]
  6. ACTOS (CON.) [Concomitant]
  7. CALCIUM WITH VITAMIN D (CON.) [Concomitant]
  8. METFORMIN (CON.) [Concomitant]
  9. ATENOLOL (CON.) [Concomitant]
  10. PRILOSEC (CON.) [Concomitant]
  11. CENTRUM SILVER (CON.) [Concomitant]
  12. ASPIRIN (CON.) [Concomitant]
  13. BYETTA (CON.) [Concomitant]
  14. AMARYL (CON.) [Concomitant]
  15. COMPAZINE (CON.) [Concomitant]
  16. LEXAPRO (CON.) [Concomitant]
  17. ZOFRAN (CON.) [Concomitant]
  18. TYLENOL (CON.) [Concomitant]
  19. ADVIL (CON.) [Concomitant]

REACTIONS (19)
  - BLOOD PRESSURE INCREASED [None]
  - BLOOD SODIUM DECREASED [None]
  - BRADYCARDIA [None]
  - CARDIAC FAILURE CONGESTIVE [None]
  - FATIGUE [None]
  - HEADACHE [None]
  - HYPERHIDROSIS [None]
  - ISCHAEMIC CARDIOMYOPATHY [None]
  - LEUKOPENIA [None]
  - NAUSEA [None]
  - PALLOR [None]
  - PULMONARY OEDEMA [None]
  - PULMONARY VALVE INCOMPETENCE [None]
  - RESPIRATORY DISTRESS [None]
  - SKIN WARM [None]
  - SPEECH DISORDER [None]
  - TACHYPNOEA [None]
  - THROMBOCYTOPENIA [None]
  - TRICUSPID VALVE INCOMPETENCE [None]
